FAERS Safety Report 7934567-3 (Version None)
Quarter: 2011Q4

REPORT INFORMATION
  Report Type: 
  Country: None (occurrence: None)
  Receive Date: 20111116
  Receipt Date: 20111107
  Transmission Date: 20120403
  Serious: Yes (Death, Hospitalization)
  Sender: FDA-Public Use
  Company Number: B0762288A

PATIENT
  Age: 36 Year
  Sex: Female

DRUGS (5)
  1. METHYLPREDNISOLONE [Concomitant]
  2. FLUTICASONE PROPIONATE [Concomitant]
  3. CLARITHROMYCIN [Concomitant]
  4. FLUTICASONE PROPIONATE/SALMETEROL [Concomitant]
  5. VENTOLIN [Suspect]
     Indication: ASTHMA

REACTIONS (23)
  - CARDIAC ARREST [None]
  - CARDIOMEGALY [None]
  - SPLENIC HAEMORRHAGE [None]
  - ASTHMA [None]
  - LOSS OF CONSCIOUSNESS [None]
  - PULMONARY OEDEMA [None]
  - BRONCHOSPASM [None]
  - DYSPNOEA [None]
  - HEPATIC STEATOSIS [None]
  - PREGNANCY [None]
  - OVERDOSE [None]
  - HYPOXIA [None]
  - HAEMORRHAGE [None]
  - HEPATIC LESION [None]
  - CARDIAC FAILURE [None]
  - RENAL HAEMORRHAGE [None]
  - ALVEOLITIS [None]
  - DRUG ABUSE [None]
  - MATERNAL EXPOSURE DURING PREGNANCY [None]
  - SUPRAVENTRICULAR TACHYCARDIA [None]
  - RESPIRATORY DISORDER [None]
  - BLOOD PRESSURE SYSTOLIC DECREASED [None]
  - ARRHYTHMOGENIC RIGHT VENTRICULAR DYSPLASIA [None]
